FAERS Safety Report 15434329 (Version 1)
Quarter: 2018Q3

REPORT INFORMATION
  Report Type: Spontaneous
  Country: JP (occurrence: JP)
  Receive Date: 20180927
  Receipt Date: 20180927
  Transmission Date: 20181010
  Serious: Yes (Hospitalization)
  Sender: FDA-Public Use
  Company Number: JP-ACTELION-A-CH2018-174530

PATIENT
  Age: 16 Year
  Sex: Female

DRUGS (13)
  1. OXYGEN. [Concomitant]
     Active Substance: OXYGEN
  2. CEFAZOLIN [Suspect]
     Active Substance: CEFAZOLIN
     Indication: PRODUCT USED FOR UNKNOWN INDICATION
     Route: 042
  3. LASIX [Concomitant]
     Active Substance: FUROSEMIDE
  4. FLUITRAN [Concomitant]
     Active Substance: TRICHLORMETHIAZIDE
  5. OPSUMIT [Suspect]
     Active Substance: MACITENTAN
     Indication: PULMONARY ARTERIAL HYPERTENSION
     Dosage: 10 MG, QD
     Route: 048
     Dates: start: 20150807, end: 20160209
  6. OPSUMIT [Suspect]
     Active Substance: MACITENTAN
     Dosage: 10 MG, QD
     Route: 048
     Dates: start: 20160406
  7. FLOLAN [Concomitant]
     Active Substance: EPOPROSTENOL SODIUM
  8. EPOPROSTENOL ACT [Suspect]
     Active Substance: EPOPROSTENOL
     Indication: PULMONARY ARTERIAL HYPERTENSION
     Dosage: 121 NG/KG, PER MIN
     Route: 042
     Dates: start: 20160106
  9. SLOW?K [Concomitant]
     Active Substance: POTASSIUM CHLORIDE
  10. INCREMIN [Concomitant]
     Active Substance: FERRIC PYROPHOSPHATE
  11. TRACLEER [Concomitant]
     Active Substance: BOSENTAN
     Indication: PULMONARY ARTERIAL HYPERTENSION
     Route: 048
  12. REVATIO [Concomitant]
     Active Substance: SILDENAFIL CITRATE
  13. ALDACTONE [Concomitant]
     Active Substance: SPIRONOLACTONE

REACTIONS (7)
  - Device related infection [Recovered/Resolved]
  - Dermatitis contact [Recovered/Resolved]
  - Upper respiratory tract inflammation [Recovered/Resolved]
  - Nasal congestion [Recovered/Resolved]
  - Autoimmune thyroiditis [Recovered/Resolved]
  - Face oedema [Not Recovered/Not Resolved]
  - Rash [Recovered/Resolved]

NARRATIVE: CASE EVENT DATE: 20160127
